FAERS Safety Report 14565209 (Version 2)
Quarter: 2018Q3

REPORT INFORMATION
  Report Type: Spontaneous
  Country: PL (occurrence: PL)
  Receive Date: 20180223
  Receipt Date: 20180705
  Transmission Date: 20181010
  Serious: Yes (Life-Threatening, Hospitalization, Other)
  Sender: FDA-Public Use
  Company Number: PL-AUROBINDO-AUR-APL-2018-009180

PATIENT
  Age: 59 Year
  Sex: Female

DRUGS (7)
  1. MEROPENEM. [Suspect]
     Active Substance: MEROPENEM
     Indication: FASCIITIS
     Route: 017
  2. CLINDAMYCIN. [Suspect]
     Active Substance: CLINDAMYCIN
     Indication: FASCIITIS
     Route: 042
  3. XYDALBA [Suspect]
     Active Substance: DALBAVANCIN HYDROCHLORIDE
     Indication: PRODUCT USED FOR UNKNOWN INDICATION
     Dosage: 1500 MG, UNK, POWDER FOR SOLUTION FOR INJECTION
     Route: 065
  4. LINEZOLID. [Suspect]
     Active Substance: LINEZOLID
     Indication: FASCIITIS
     Route: 042
  5. CLINDAMYCIN 150 MG/ML ? 2 ML [Suspect]
     Active Substance: CLINDAMYCIN
     Indication: PRODUCT USED FOR UNKNOWN INDICATION
     Dosage: UNK
     Route: 042
  6. DALBAVANCIN. [Concomitant]
     Active Substance: DALBAVANCIN
     Indication: FASCIITIS
     Route: 065
  7. OCTENISEPT                         /00972101/ [Concomitant]
     Indication: SKIN LESION
     Route: 065

REACTIONS (5)
  - Streptococcal infection [Recovered/Resolved with Sequelae]
  - Diarrhoea [Recovered/Resolved]
  - Drug ineffective [Recovered/Resolved with Sequelae]
  - Clostridium difficile colitis [Recovered/Resolved]
  - Clostridium difficile infection [Recovered/Resolved]
